FAERS Safety Report 6999460-1 (Version None)
Quarter: 2010Q3

REPORT INFORMATION
  Report Type: 
  Country: None (occurrence: None)
  Receive Date: 20100920
  Receipt Date: 20070430
  Transmission Date: 20110219
  Serious: Yes (Other)
  Sender: FDA-Public Use
  Company Number: US-ASTRAZENECA-2006UW11293

PATIENT
  Sex: Male
  Weight: 57.2 kg

DRUGS (12)
  1. SEROQUEL [Suspect]
     Indication: SCHIZOPHRENIA
     Route: 048
     Dates: start: 20030418
  2. SEROQUEL [Suspect]
     Indication: BIPOLAR DISORDER
     Route: 048
     Dates: start: 20030418
  3. ZYPREXA [Suspect]
     Dates: start: 20020101
  4. ZYPREXA [Suspect]
     Dates: start: 20030418
  5. ZYPREXA [Suspect]
     Dosage: 2 MG TO 20 MG
     Dates: start: 20030508
  6. CLOZARIL [Concomitant]
     Dates: start: 20000101
  7. HALDOL [Concomitant]
     Dates: start: 19970101
  8. RISPERDAL [Concomitant]
     Dates: start: 19970101, end: 20000101
  9. THORAZINE [Concomitant]
     Dates: start: 19640101
  10. ATIVAN [Concomitant]
     Indication: AGITATION
     Dosage: 1.5 MG TO 2 MG
     Route: 048
     Dates: start: 19981026
  11. ATIVAN [Concomitant]
     Indication: ANXIETY
     Dosage: 1.5 MG TO 2 MG
     Route: 048
     Dates: start: 19981026
  12. BUSPAR [Concomitant]
     Route: 048
     Dates: start: 19981023

REACTIONS (1)
  - PANCREATITIS [None]
